FAERS Safety Report 6686462-8 (Version None)
Quarter: 2010Q2

REPORT INFORMATION
  Report Type: 
  Country: None (occurrence: None)
  Receive Date: 20100419
  Receipt Date: 20100412
  Transmission Date: 20101027
  Serious: Yes (Hospitalization)
  Sender: FDA-Public Use
  Company Number: US-ROCHE-694906

PATIENT
  Sex: Female

DRUGS (2)
  1. VALCYTE [Suspect]
     Indication: RENAL AND PANCREAS TRANSPLANT
     Route: 065
  2. VALCYTE [Suspect]
     Route: 065

REACTIONS (2)
  - CYTOMEGALOVIRUS INFECTION [None]
  - DRUG HYPERSENSITIVITY [None]
